FAERS Safety Report 8099464-4 (Version None)
Quarter: 2012Q1

REPORT INFORMATION
  Report Type: 
  Country: None (occurrence: None)
  Receive Date: 20120129
  Receipt Date: 20111014
  Transmission Date: 20120608
  Serious: No
  Sender: FDA-Public Use
  Company Number: US-ABBOTT-11P-163-0861832-00

PATIENT
  Age: 57 Year
  Sex: Female

DRUGS (11)
  1. NEXIUM [Concomitant]
     Indication: GASTROOESOPHAGEAL REFLUX DISEASE
     Dosage: DAILY FOR YEARS
  2. COLESTIPOL HYDROCHLORIDE [Concomitant]
     Indication: CROHN'S DISEASE
     Dosage: FOR YEARS
  3. LISINOPRIL [Concomitant]
     Indication: BLOOD PRESSURE INCREASED
     Dosage: DAILY FOR YEARS
  4. IMURAN [Concomitant]
     Indication: CROHN'S DISEASE
     Dosage: 1/1/2 DAILY
  5. BONIVA [Concomitant]
     Indication: OSTEOPOROSIS
     Dosage: FOR YEARS MONTHLY
  6. HUMIRA [Suspect]
     Indication: CROHN'S DISEASE
     Dates: start: 20110722
  7. REGLAN [Concomitant]
     Indication: CROHN'S DISEASE
     Dosage: FOR YEARS
  8. CELEBREX [Concomitant]
     Indication: ARTHRITIS
     Dosage: FOR YEARS
  9. LANTUS [Concomitant]
     Indication: TYPE 2 DIABETES MELLITUS
     Dosage: INSULIN AT BEDTIME FOR YEARS
  10. ASACOL [Concomitant]
     Indication: CROHN'S DISEASE
     Dosage: FOR YEARS
  11. ONDANSETRON HCL [Concomitant]
     Indication: CROHN'S DISEASE
     Dosage: DAILY

REACTIONS (2)
  - HEADACHE [None]
  - PHOTOPHOBIA [None]
